FAERS Safety Report 9383884 (Version 1)
Quarter: 2013Q3

REPORT INFORMATION
  Report Type: Spontaneous
  Country: FR (occurrence: FR)
  Receive Date: 20130704
  Receipt Date: 20130704
  Transmission Date: 20140515
  Serious: Yes (Other)
  Sender: FDA-Public Use
  Company Number: FR-AMGEN-FRASP2013046673

PATIENT
  Age: 64 Year
  Sex: Female

DRUGS (6)
  1. NEULASTA [Suspect]
     Indication: PRODUCT USED FOR UNKNOWN INDICATION
     Dosage: ONCE, UNK
     Route: 058
     Dates: start: 20130525, end: 20130525
  2. 5-FU                               /00098801/ [Concomitant]
     Indication: BREAST CANCER RECURRENT
     Dosage: UNK
  3. EPIRUBICIN [Concomitant]
     Indication: BREAST CANCER RECURRENT
     Dosage: UNK
  4. CYCLOPHOSPHAMIDE [Concomitant]
     Indication: BREAST CANCER RECURRENT
     Dosage: UNK
  5. HERCEPTIN [Concomitant]
     Indication: BREAST CANCER RECURRENT
     Dosage: UNK
     Dates: start: 20130524
  6. TAXOTERE [Concomitant]
     Indication: BREAST CANCER RECURRENT
     Dosage: UNK
     Dates: start: 20130524

REACTIONS (1)
  - Asphyxia [Recovered/Resolved]
